FAERS Safety Report 6967811-X (Version None)
Quarter: 2010Q3

REPORT INFORMATION
  Report Type: 
  Country: None (occurrence: None)
  Receive Date: 20100907
  Receipt Date: 20100827
  Transmission Date: 20110219
  Serious: Yes (Hospitalization, Other)
  Sender: FDA-Public Use
  Company Number: CA-PURDUE-CAN-2010-0001501

PATIENT
  Age: 76 Year
  Sex: Male
  Weight: 81.8 kg

DRUGS (19)
  1. DILAUDID [Suspect]
     Indication: PAIN
     Dosage: 8 MG, SINGLE
     Route: 048
     Dates: start: 20051122, end: 20051122
  2. DILAUDID [Suspect]
     Dosage: 4 MG, UNK
     Route: 048
     Dates: start: 20051117, end: 20051122
  3. DILAUDID [Suspect]
     Dosage: 1 MG, UNK
     Route: 048
     Dates: start: 20051114, end: 20051117
  4. PACLITAXEL [Suspect]
     Indication: NON-SMALL CELL LUNG CANCER
     Dosage: 200 MG/M2, SEE TEXT
     Route: 042
     Dates: start: 20051122, end: 20051122
  5. CARBOPLATIN [Suspect]
     Indication: NON-SMALL CELL LUNG CANCER
     Dosage: UNK
     Dates: start: 20051122, end: 20051122
  6. RANITIDINE [Suspect]
     Indication: PROPHYLAXIS OF NAUSEA AND VOMITING
     Dosage: 50 MG, UNK
     Route: 042
     Dates: start: 20051122, end: 20051122
  7. RANITIDINE [Suspect]
     Indication: HYPERSENSITIVITY
  8. FENTANYL CITRATE [Suspect]
     Indication: PAIN
     Dosage: 25 MG, UNK
     Route: 062
     Dates: start: 20051122
  9. FENTANYL CITRATE [Suspect]
     Dosage: 50 MG, UNK
     Route: 062
     Dates: start: 20051121, end: 20051122
  10. DECADRON [Suspect]
     Indication: PROPHYLAXIS OF NAUSEA AND VOMITING
     Dosage: 20 MG, UNK
     Route: 042
     Dates: start: 20051122, end: 20060203
  11. DECADRON [Suspect]
     Indication: HYPERSENSITIVITY
  12. BENADRYL [Suspect]
     Indication: PROPHYLAXIS OF NAUSEA AND VOMITING
     Dosage: 50 MG, UNK
     Route: 042
     Dates: start: 20051122, end: 20051122
  13. BENADRYL [Suspect]
     Indication: HYPERSENSITIVITY
  14. ZOFRAN [Suspect]
     Indication: PROPHYLAXIS OF NAUSEA AND VOMITING
     Dosage: 8 MG, UNK
     Route: 042
     Dates: start: 20051122, end: 20051122
  15. ZOFRAN [Suspect]
     Indication: HYPERSENSITIVITY
  16. GABAPENTIN [Concomitant]
     Indication: PRODUCT USED FOR UNKNOWN INDICATION
     Dosage: UNK
     Dates: start: 20051121
  17. METOPROLOL TARTRATE [Concomitant]
     Indication: PRODUCT USED FOR UNKNOWN INDICATION
     Dosage: UNK
     Dates: start: 20051027, end: 20051028
  18. NORVASC [Concomitant]
     Indication: PRODUCT USED FOR UNKNOWN INDICATION
     Dosage: UNK
     Dates: start: 20051027, end: 20051205
  19. NOVOHYDRAZIDE [Concomitant]
     Indication: PRODUCT USED FOR UNKNOWN INDICATION
     Dosage: UNK
     Dates: start: 20051027, end: 20051205

REACTIONS (3)
  - DEPRESSED LEVEL OF CONSCIOUSNESS [None]
  - MIOSIS [None]
  - OXYGEN SATURATION DECREASED [None]
